FAERS Safety Report 14687146 (Version 1)
Quarter: 2018Q1

REPORT INFORMATION
  Report Type: Report from Study
  Country: None (occurrence: BR)
  Receive Date: 20180328
  Receipt Date: 20180328
  Transmission Date: 20180509
  Serious: Yes (Hospitalization, Disabling, Other)
  Sender: FDA-Public Use
  Company Number: BR-ABBVIE-18K-020-2225382-00

PATIENT
  Age: 80 Year
  Sex: Female
  Weight: 50 kg

DRUGS (10)
  1. HUMIRA [Suspect]
     Active Substance: ADALIMUMAB
     Indication: RHEUMATOID ARTHRITIS
     Route: 058
  2. ENALAPRIL [Concomitant]
     Active Substance: ENALAPRIL
     Indication: BLOOD PRESSURE ABNORMAL
  3. CLO [Concomitant]
     Active Substance: CLOMIPRAMINE HYDROCHLORIDE
     Indication: ANXIETY
  4. SELOZOK [Concomitant]
     Active Substance: METOPROLOL SUCCINATE
     Indication: CARDIAC DISORDER
  5. FRONTAL [Concomitant]
     Active Substance: ALPRAZOLAM
     Indication: ANXIETY
  6. CLO [Concomitant]
     Active Substance: CLOMIPRAMINE HYDROCHLORIDE
     Indication: SLEEP DISORDER THERAPY
  7. REUQUINOL [Concomitant]
     Active Substance: HYDROXYCHLOROQUINE SULFATE
     Indication: ANXIETY
  8. HUMIRA [Suspect]
     Active Substance: ADALIMUMAB
     Indication: RHEUMATOID ARTHRITIS
     Route: 058
     Dates: start: 20130429
  9. FRONTAL [Concomitant]
     Active Substance: ALPRAZOLAM
     Indication: SLEEP DISORDER THERAPY
  10. REUQUINOL [Concomitant]
     Active Substance: HYDROXYCHLOROQUINE SULFATE
     Indication: SLEEP DISORDER THERAPY

REACTIONS (10)
  - Mitral valve incompetence [Unknown]
  - Mobility decreased [Unknown]
  - Left ventricular hypertrophy [Unknown]
  - Cerebrovascular accident [Unknown]
  - Aortic arteriosclerosis [Unknown]
  - Fatigue [Recovering/Resolving]
  - Heart rate increased [Unknown]
  - Gait inability [Recovering/Resolving]
  - Computerised tomogram abnormal [Unknown]
  - Increased ventricular afterload [Unknown]

NARRATIVE: CASE EVENT DATE: 201801
